FAERS Safety Report 8298689-2 (Version None)
Quarter: 2012Q2

REPORT INFORMATION
  Report Type: 
  Country: None (occurrence: None)
  Receive Date: 20120419
  Receipt Date: 20120410
  Transmission Date: 20120825
  Serious: Yes (Hospitalization, Other)
  Sender: FDA-Public Use
  Company Number: FR-ASTRAZENECA-2012SE24280

PATIENT
  Age: 881 Month
  Sex: Male

DRUGS (2)
  1. LEUPROLIDE ACETATE [Suspect]
     Indication: PROSTATE CANCER
     Route: 051
     Dates: start: 20100401
  2. CASODEX [Suspect]
     Indication: PROSTATE CANCER
     Route: 048
     Dates: start: 20100401, end: 20100601

REACTIONS (6)
  - CEREBELLAR SYNDROME [None]
  - DYSKINESIA [None]
  - PAIN IN EXTREMITY [None]
  - ENCEPHALITIS [None]
  - COMA [None]
  - EPILEPSY [None]
